FAERS Safety Report 7265201-6 (Version None)
Quarter: 2011Q1

REPORT INFORMATION
  Report Type: 
  Country: None (occurrence: None)
  Receive Date: 20110131
  Receipt Date: 20110127
  Transmission Date: 20110831
  Serious: Yes (Death, Hospitalization)
  Sender: FDA-Public Use
  Company Number: FR-ASTRAZENECA-2011SE04896

PATIENT
  Age: 39 Year
  Sex: Female

DRUGS (4)
  1. ATENOLOL [Suspect]
     Route: 048
  2. RAMIPRIL [Concomitant]
     Route: 048
  3. ZOPICLONE [Concomitant]
     Route: 048
  4. RISPERIDONE [Concomitant]
     Route: 048

REACTIONS (7)
  - SHOCK [None]
  - SINUS BRADYCARDIA [None]
  - OVERDOSE [None]
  - HYPERLACTACIDAEMIA [None]
  - TOXICITY TO VARIOUS AGENTS [None]
  - MULTI-ORGAN FAILURE [None]
  - HYPOTENSION [None]
